FAERS Safety Report 11596366 (Version 1)
Quarter: 2015Q4

REPORT INFORMATION
  Report Type: Spontaneous
  Country: None (occurrence: None)
  Receive Date: 20151005
  Receipt Date: 20151005
  Transmission Date: 20160304
  Serious: No
  Sender: FDA-Public Use
  Company Number: None

PATIENT
  Age: 47 Year
  Sex: Male
  Weight: 88.45 kg

DRUGS (1)
  1. MIRALAX [Suspect]
     Active Substance: POLYETHYLENE GLYCOL 3350
     Indication: CONSTIPATION
     Dates: start: 20151001, end: 20151002

REACTIONS (8)
  - Cold sweat [None]
  - Headache [None]
  - Insomnia [None]
  - Influenza [None]
  - Oropharyngeal pain [None]
  - Pruritus [None]
  - Myalgia [None]
  - Pain in jaw [None]

NARRATIVE: CASE EVENT DATE: 20151002
